FAERS Safety Report 24660056 (Version 1)
Quarter: 2024Q4

REPORT INFORMATION
  Report Type: Spontaneous
  Country: GB (occurrence: GB)
  Receive Date: 20241125
  Receipt Date: 20241125
  Transmission Date: 20250115
  Serious: Yes (Other)
  Sender: MYLAN
  Company Number: GB-MHRA-TPP5209535C24288454YC1732037129504

PATIENT
  Age: 18 Year
  Sex: Male
  Weight: 58 kg

DRUGS (7)
  1. DOXYCYCLINE [Suspect]
     Active Substance: DOXYCYCLINE
     Indication: Ill-defined disorder
     Dosage: 100 MILLIGRAM, QD (TAKE ONE DAILY)
     Route: 065
     Dates: start: 20241022
  2. LYMECYCLINE [Concomitant]
     Active Substance: LYMECYCLINE
     Indication: Ill-defined disorder
     Dosage: 1 DOSAGE FORM, QD (ONE DAILY)
     Route: 065
     Dates: start: 20240905, end: 20241031
  3. AZELAIC ACID [Concomitant]
     Active Substance: AZELAIC ACID
     Indication: Ill-defined disorder
     Dosage: 1 DOSAGE FORM, BID (APPLY TWICE DAILY FOR 3 MONTHS)
     Route: 065
     Dates: start: 20241022
  4. ALBUTEROL [Concomitant]
     Active Substance: ALBUTEROL
     Indication: Ill-defined disorder
     Dosage: 2 DOSAGE FORM (INHALE 2 DOSES AS NEEDED)
     Route: 055
     Dates: start: 20220215
  5. BENZOYL PEROXIDE [Concomitant]
     Active Substance: BENZOYL PEROXIDE
     Indication: Ill-defined disorder
     Dosage: UNK  PM (APPLY AT NIGHT FOR 12 WEEKS)
     Route: 065
     Dates: start: 20231124
  6. EASYHALER [Concomitant]
     Indication: Ill-defined disorder
     Dosage: 1 DOSAGE FORM, BID (INHALE 1 DOSE TWICE DAILY)
     Route: 055
     Dates: start: 20240214
  7. ERYTHROMYCIN [Concomitant]
     Active Substance: ERYTHROMYCIN
     Indication: Ill-defined disorder
     Dosage: 2 DOSAGE FORM, BID (TAKE TWO TABLETS TWICE A DAY)
     Route: 065
     Dates: start: 20241118

REACTIONS (1)
  - Arthralgia [Recovered/Resolved]
